FAERS Safety Report 21516378 (Version 2)
Quarter: 2023Q1

REPORT INFORMATION
  Report Type: Spontaneous
  Country: US (occurrence: US)
  Receive Date: 20221027
  Receipt Date: 20230213
  Transmission Date: 20230418
  Serious: Yes (Other)
  Sender: FDA-Public Use
  Company Number: US-AMGEN-USASP2022182266

PATIENT
  Age: 74 Year
  Sex: Female

DRUGS (1)
  1. PROLIA [Suspect]
     Active Substance: DENOSUMAB
     Indication: Osteoporosis postmenopausal
     Dosage: UNK
     Route: 065

REACTIONS (3)
  - Lumbar vertebral fracture [Unknown]
  - Multiple fractures [Unknown]
  - Vertebroplasty [Unknown]

NARRATIVE: CASE EVENT DATE: 20211201
